FAERS Safety Report 9330622 (Version 2)
Quarter: 2013Q2

REPORT INFORMATION
  Report Type: Report from Study
  Country: NL (occurrence: NL)
  Receive Date: 20130605
  Receipt Date: 20130627
  Transmission Date: 20140414
  Serious: Yes (Hospitalization)
  Sender: FDA-Public Use
  Company Number: NL-AMGEN-NLDCT2013039256

PATIENT
  Age: 2 Year
  Sex: Female
  Weight: 18 kg

DRUGS (1)
  1. ETANERCEPT [Suspect]
     Indication: JUVENILE IDIOPATHIC ARTHRITIS
     Dosage: 10 MG, WEEKLY
     Route: 065
     Dates: start: 201209

REACTIONS (1)
  - Varicella [Recovered/Resolved]
